FAERS Safety Report 7283974-3 (Version None)
Quarter: 2011Q1

REPORT INFORMATION
  Report Type: 
  Country: None (occurrence: None)
  Receive Date: 20110209
  Receipt Date: 20110201
  Transmission Date: 20110831
  Serious: Yes (Hospitalization)
  Sender: FDA-Public Use
  Company Number: FR-ASTRAZENECA-2010SE56067

PATIENT
  Age: 31191 Day
  Sex: Male

DRUGS (8)
  1. ART 50 [Concomitant]
  2. ATACAND [Suspect]
     Indication: HYPERTENSION
     Route: 048
     Dates: start: 20100827, end: 20101029
  3. SINTROM [Concomitant]
  4. MULTAQ [Suspect]
     Indication: ATRIAL FIBRILLATION
     Route: 048
     Dates: start: 20101015, end: 20101029
  5. ERY-TAB [Concomitant]
  6. FUROSEMIDE [Concomitant]
  7. LYRICA [Concomitant]
  8. RIVOTRIL [Concomitant]
     Dosage: 2.5 MG/ML SIX DROPS EVERY EVENING

REACTIONS (2)
  - BLOOD CREATININE INCREASED [None]
  - AZOTAEMIA [None]
